FAERS Safety Report 7315983-X (Version None)
Quarter: 2011Q1

REPORT INFORMATION
  Report Type: 
  Country: None (occurrence: None)
  Receive Date: 20110225
  Receipt Date: 20110214
  Transmission Date: 20110831
  Serious: Yes (Other)
  Sender: FDA-Public Use
  Company Number: PHHY2011US13087

PATIENT
  Age: 56 Year
  Sex: Female

DRUGS (4)
  1. RECLAST [Suspect]
     Dosage: 5 MG/100 ML
     Dates: start: 20101020
  2. CALCIUM [Concomitant]
  3. MAGNESIUM [Concomitant]
  4. VITAMIN D [Concomitant]
     Dosage: UNK

REACTIONS (3)
  - WRIST FRACTURE [None]
  - PAIN IN JAW [None]
  - FACIAL PAIN [None]
